FAERS Safety Report 4309054-4 (Version None)
Quarter: 2004Q1

REPORT INFORMATION
  Report Type: 
  Country: None (occurrence: None)
  Receive Date: 20040302
  Receipt Date: 20040224
  Transmission Date: 20041129
  Serious: Yes (Hospitalization)
  Sender: FDA-Public Use
  Company Number: 200412590GDDC

PATIENT
  Age: 16 Year
  Sex: Female

DRUGS (2)
  1. LANTUS [Suspect]
     Indication: DIABETES MELLITUS INSULIN-DEPENDENT
     Route: 058
     Dates: start: 20031101, end: 20031101
  2. NOVORAPID [Concomitant]
     Dosage: FREQUENCY: BEFORE MEALS; DOSE UNIT: UNITS
     Route: 058
     Dates: start: 20030101, end: 20030101

REACTIONS (4)
  - HYPERSENSITIVITY [None]
  - MALAISE [None]
  - RASH ERYTHEMATOUS [None]
  - RASH MACULAR [None]
